FAERS Safety Report 8329304-7 (Version None)
Quarter: 2012Q2

REPORT INFORMATION
  Report Type: 
  Country: None (occurrence: None)
  Receive Date: 20120502
  Receipt Date: 20110527
  Transmission Date: 20120825
  Serious: No
  Sender: FDA-Public Use
  Company Number: US-ASTRAZENECA-2011SE33309

PATIENT
  Age: 48 Year
  Sex: Female

DRUGS (2)
  1. FASLODEX [Suspect]
     Indication: BREAST CANCER STAGE IV
     Route: 030
     Dates: start: 20110501
  2. ARIMIDEX [Suspect]
     Route: 048

REACTIONS (4)
  - INJECTION SITE PAIN [None]
  - INJECTION SITE MASS [None]
  - HOT FLUSH [None]
  - INCORRECT ROUTE OF DRUG ADMINISTRATION [None]
